FAERS Safety Report 16104992 (Version 4)
Quarter: 2019Q2

REPORT INFORMATION
  Report Type: Report from Study
  Country: IT (occurrence: IT)
  Receive Date: 20190322
  Receipt Date: 20190424
  Transmission Date: 20190711
  Serious: Yes (Hospitalization)
  Sender: FDA-Public Use
  Company Number: IT-MYLANLABS-2019M1024108

PATIENT
  Age: 58 Year
  Sex: Male

DRUGS (1)
  1. LEVOFLOXACIN. [Suspect]
     Active Substance: LEVOFLOXACIN
     Indication: ANTIBIOTIC THERAPY
     Dosage: 1500 MILLIGRAM, QD
     Route: 048
     Dates: start: 20180724, end: 20180726

REACTIONS (3)
  - Intentional product misuse [Unknown]
  - Paraesthesia [Unknown]
  - Medication error [Unknown]

NARRATIVE: CASE EVENT DATE: 20180724
